FAERS Safety Report 19435745 (Version 2)
Quarter: 2021Q4

REPORT INFORMATION
  Report Type: Spontaneous
  Country: US (occurrence: US)
  Receive Date: 20210618
  Receipt Date: 20211208
  Transmission Date: 20220304
  Serious: Yes (Other)
  Sender: FDA-Public Use
  Company Number: US-GILEAD-2021-0536637

PATIENT
  Sex: Male

DRUGS (12)
  1. ATRIPLA [Suspect]
     Active Substance: EFAVIRENZ\EMTRICITABINE\TENOFOVIR DISOPROXIL FUMARATE
     Indication: HIV infection
     Dosage: UNK
     Route: 048
     Dates: start: 2007, end: 201605
  2. ATRIPLA [Suspect]
     Active Substance: EFAVIRENZ\EMTRICITABINE\TENOFOVIR DISOPROXIL FUMARATE
     Dosage: UNK
     Route: 048
     Dates: start: 2012
  3. DESCOVY [Concomitant]
     Active Substance: EMTRICITABINE\TENOFOVIR ALAFENAMIDE FUMARATE
  4. EPIVIR [Concomitant]
     Active Substance: LAMIVUDINE
  5. RETROVIR [Concomitant]
     Active Substance: ZIDOVUDINE
  6. SUSTIVA [Concomitant]
     Active Substance: EFAVIRENZ
  7. AZT [Concomitant]
     Active Substance: ZIDOVUDINE
  8. EFAVIRENZ [Concomitant]
     Active Substance: EFAVIRENZ
  9. METOPROLOL [Concomitant]
     Active Substance: METOPROLOL
  10. VITAMIN D3 [Concomitant]
     Active Substance: CHOLECALCIFEROL
  11. GLIPIZIDE [Concomitant]
     Active Substance: GLIPIZIDE
  12. ELIQUIS [Concomitant]
     Active Substance: APIXABAN

REACTIONS (16)
  - Renal injury [Unknown]
  - Osteoporosis [Not Recovered/Not Resolved]
  - Protein urine present [Unknown]
  - Pain [Not Recovered/Not Resolved]
  - Emotional distress [Not Recovered/Not Resolved]
  - Anxiety [Not Recovered/Not Resolved]
  - Anhedonia [Not Recovered/Not Resolved]
  - Bone density decreased [Unknown]
  - Osteopenia [Not Recovered/Not Resolved]
  - Renal impairment [Not Recovered/Not Resolved]
  - Cardiac disorder [Unknown]
  - Proteinuria [Not Recovered/Not Resolved]
  - Pain [Unknown]
  - Bone density abnormal [Not Recovered/Not Resolved]
  - Dysstasia [Unknown]
  - Depression [Not Recovered/Not Resolved]

NARRATIVE: CASE EVENT DATE: 20160101
